FAERS Safety Report 7751792-5 (Version None)
Quarter: 2011Q3

REPORT INFORMATION
  Report Type: 
  Country: None (occurrence: None)
  Receive Date: 20110915
  Receipt Date: 20110901
  Transmission Date: 20111222
  Serious: Yes (Other)
  Sender: FDA-Public Use
  Company Number: PHHY2011FR79495

PATIENT
  Age: 27 Year
  Sex: Female

DRUGS (1)
  1. CYCLOSPORINE [Suspect]
     Indication: PAROXYSMAL NOCTURNAL HAEMOGLOBINURIA
     Dosage: UNK

REACTIONS (4)
  - MATERNAL EXPOSURE DURING PREGNANCY [None]
  - HAEMOLYSIS [None]
  - APLASTIC ANAEMIA [None]
  - NORMAL NEWBORN [None]
